FAERS Safety Report 24752150 (Version 5)
Quarter: 2025Q1

REPORT INFORMATION
  Report Type: Spontaneous
  Country: CA (occurrence: CA)
  Receive Date: 20241219
  Receipt Date: 20250110
  Transmission Date: 20250409
  Serious: Yes (Other)
  Sender: REGENERON
  Company Number: CA-BAYER-2024A178179

PATIENT
  Age: 86 Year
  Sex: Female

DRUGS (2)
  1. EYLEA HD [Suspect]
     Active Substance: AFLIBERCEPT
     Indication: Diabetic retinal oedema
     Dates: start: 20241206
  2. EYLEA HD [Suspect]
     Active Substance: AFLIBERCEPT
     Indication: Age-related macular degeneration

REACTIONS (8)
  - Toxic anterior segment syndrome [Not Recovered/Not Resolved]
  - Endophthalmitis [Unknown]
  - Anterior chamber inflammation [Unknown]
  - Visual impairment [Unknown]
  - Visual acuity reduced [Unknown]
  - Vitreous floaters [Recovering/Resolving]
  - Vision blurred [Recovering/Resolving]
  - Corneal abrasion [Unknown]

NARRATIVE: CASE EVENT DATE: 20241206
